FAERS Safety Report 24193213 (Version 2)
Quarter: 2024Q3

REPORT INFORMATION
  Report Type: Spontaneous
  Country: JP (occurrence: JP)
  Receive Date: 20240809
  Receipt Date: 20240816
  Transmission Date: 20241017
  Serious: Yes (Other)
  Sender: MACLEODS
  Company Number: JP-MACLEODS PHARMA-MAC2024048627

PATIENT

DRUGS (7)
  1. ACYCLOVIR [Suspect]
     Active Substance: ACYCLOVIR
     Indication: Varicella zoster virus infection
     Route: 042
  2. ACYCLOVIR [Suspect]
     Active Substance: ACYCLOVIR
     Indication: Varicella zoster virus infection
  3. PREDNISONE [Concomitant]
     Active Substance: PREDNISONE
     Dosage: FROM DAY 31 TO DAY 34
     Route: 065
  4. PREDNISONE [Concomitant]
     Active Substance: PREDNISONE
  5. APIXABAN [Concomitant]
     Active Substance: APIXABAN
     Route: 065
  6. APIXABAN [Concomitant]
     Active Substance: APIXABAN
  7. APIXABAN [Concomitant]
     Active Substance: APIXABAN

REACTIONS (1)
  - Neutropenia [Unknown]
